FAERS Safety Report 17041145 (Version 1)
Quarter: 2019Q4

REPORT INFORMATION
  Report Type: Report from Study
  Country: None (occurrence: RO)
  Receive Date: 20191118
  Receipt Date: 20191118
  Transmission Date: 20200122
  Serious: Yes (Hospitalization, Other)
  Sender: FDA-Public Use
  Company Number: RO-ABBVIE-19K-135-3000239-00

PATIENT
  Age: 59 Year
  Sex: Male

DRUGS (14)
  1. NORVASC [Concomitant]
     Active Substance: AMLODIPINE BESYLATE
     Indication: BLOOD PRESSURE FLUCTUATION
     Route: 048
     Dates: start: 2018, end: 20190814
  2. NIFEDIPINE. [Concomitant]
     Active Substance: NIFEDIPINE
     Indication: HYPERTENSION
     Route: 048
     Dates: start: 20190814
  3. GLUCOBAY [Concomitant]
     Active Substance: ACARBOSE
     Indication: DIABETES MELLITUS
     Route: 055
  4. SPIRONOLACTONE. [Concomitant]
     Active Substance: SPIRONOLACTONE
     Indication: HYPERTENSION
     Route: 048
     Dates: start: 20190814
  5. TERTENSIF [Concomitant]
     Active Substance: INDAPAMIDE
     Indication: BLOOD PRESSURE FLUCTUATION
     Route: 048
     Dates: start: 2018, end: 20190814
  6. CAVINTON COMFORTE [Concomitant]
     Indication: ISCHAEMIC STROKE
     Route: 048
     Dates: start: 201712
  7. HUMIRA [Suspect]
     Active Substance: ADALIMUMAB
     Indication: ANKYLOSING SPONDYLITIS
     Route: 058
     Dates: start: 20120815, end: 20191028
  8. SINTROM [Concomitant]
     Active Substance: ACENOCOUMAROL
     Indication: BLOOD PRESSURE FLUCTUATION
     Route: 048
     Dates: start: 20190304
  9. MICARDIS [Concomitant]
     Active Substance: TELMISARTAN
     Indication: HYPERTENSION
     Route: 048
     Dates: start: 20190814
  10. SORTIS [Concomitant]
     Active Substance: ATORVASTATIN
     Indication: HYPERCHOLESTEROLAEMIA
     Route: 048
     Dates: start: 2017
  11. PHYSIOTENS [Concomitant]
     Active Substance: MOXONIDINE
     Indication: BLOOD PRESSURE FLUCTUATION
     Route: 048
     Dates: start: 2018
  12. NEBILET [Concomitant]
     Active Substance: NEBIVOLOL
     Indication: BLOOD PRESSURE ABNORMAL
     Route: 048
     Dates: start: 2018
  13. ATACAND [Concomitant]
     Active Substance: CANDESARTAN CILEXETIL
     Indication: BLOOD PRESSURE FLUCTUATION
     Route: 048
     Dates: start: 2018, end: 20190814
  14. LANTUS [Concomitant]
     Active Substance: INSULIN GLARGINE
     Indication: DIABETES MELLITUS
     Route: 058

REACTIONS (4)
  - Nasopharyngitis [Recovering/Resolving]
  - Tremor [Recovering/Resolving]
  - Insomnia [Recovering/Resolving]
  - Cerebrovascular accident [Unknown]

NARRATIVE: CASE EVENT DATE: 201812
